FAERS Safety Report 13548040 (Version 2)
Quarter: 2017Q2

REPORT INFORMATION
  Report Type: Report from Study
  Country: None (occurrence: CA)
  Receive Date: 20170516
  Receipt Date: 20170529
  Transmission Date: 20170830
  Serious: Yes (Other)
  Sender: FDA-Public Use
  Company Number: CA-ABBVIE-17K-028-1974202-00

PATIENT
  Sex: Male

DRUGS (1)
  1. HUMIRA [Suspect]
     Active Substance: ADALIMUMAB
     Indication: ANKYLOSING SPONDYLITIS
     Route: 058

REACTIONS (2)
  - Intervertebral disc protrusion [Not Recovered/Not Resolved]
  - Procedural complication [Not Recovered/Not Resolved]

NARRATIVE: CASE EVENT DATE: 2016
